FAERS Safety Report 7402122-X (Version None)
Quarter: 2011Q2

REPORT INFORMATION
  Report Type: 
  Country: None (occurrence: None)
  Receive Date: 20110408
  Receipt Date: 20110329
  Transmission Date: 20111010
  Serious: Yes (Hospitalization, Other)
  Sender: FDA-Public Use
  Company Number: US-BAYER-2011-028022

PATIENT
  Age: 26 Year
  Sex: Female

DRUGS (1)
  1. MIRENA [Suspect]
     Dosage: UNK
     Dates: start: 20110127, end: 20110301

REACTIONS (4)
  - GENITAL HAEMORRHAGE [None]
  - PAIN [None]
  - COCCYDYNIA [None]
  - ECTOPIC PREGNANCY WITH INTRAUTERINE DEVICE [None]
